FAERS Safety Report 5009665-7 (Version None)
Quarter: 2006Q2

REPORT INFORMATION
  Report Type: 
  Country: None (occurrence: None)
  Receive Date: 20060524
  Receipt Date: 20060517
  Transmission Date: 20061013
  Serious: Yes (Hospitalization)
  Sender: FDA-Public Use
  Company Number: FR-GLAXOSMITHKLINE-B0424744A

PATIENT
  Age: 84 Year
  Sex: Male

DRUGS (4)
  1. AUGMENTIN '125' [Suspect]
     Indication: ERYSIPELAS
     Dosage: 2G PER DAY
     Route: 048
     Dates: start: 20060415, end: 20060425
  2. COUMADIN [Concomitant]
     Dosage: 4G PER DAY
     Route: 048
  3. SECTRAL [Concomitant]
     Dosage: 200MG PER DAY
     Route: 048
  4. COVERSYL [Concomitant]
     Dosage: 2MG PER DAY
     Route: 048

REACTIONS (6)
  - ARRHYTHMIA [None]
  - PITTING OEDEMA [None]
  - RASH PUSTULAR [None]
  - SKIN INFLAMMATION [None]
  - TOXIC SKIN ERUPTION [None]
  - WOUND SECRETION [None]
